FAERS Safety Report 21540895 (Version 1)
Quarter: 2022Q4

REPORT INFORMATION
  Report Type: Spontaneous
  Country: US (occurrence: US)
  Receive Date: 20221102
  Receipt Date: 20221102
  Transmission Date: 20230112
  Serious: No
  Sender: FDA-Public Use
  Company Number: US-TEVA-2022-US-2082306

PATIENT
  Sex: Female

DRUGS (1)
  1. MUPIROCIN [Suspect]
     Active Substance: MUPIROCIN
     Indication: Eczema
     Dosage: 2 %, 3-5 DAYS
     Route: 065

REACTIONS (4)
  - Product prescribing issue [Unknown]
  - Scratch [Unknown]
  - Rash [Unknown]
  - Therapeutic product effect delayed [Unknown]
